FAERS Safety Report 8126065-1 (Version None)
Quarter: 2012Q1

REPORT INFORMATION
  Report Type: 
  Country: None (occurrence: None)
  Receive Date: 20120209
  Receipt Date: 20120130
  Transmission Date: 20120608
  Serious: Yes (Other)
  Sender: FDA-Public Use
  Company Number: PHHY2011JP77757

PATIENT
  Age: 49 Year
  Sex: Female

DRUGS (5)
  1. SULFAMETHOXAZOLE [Concomitant]
     Dosage: UNK UKN, UNK
     Route: 048
  2. TRIMETHOPRIM [Concomitant]
     Dosage: UNK UKN, UNK
     Route: 048
  3. NEORAL [Suspect]
     Route: 048
  4. SITAGLIPTIN PHOSPHATE [Concomitant]
     Route: 048
  5. SULFAMETHOXAZOLE [Concomitant]
     Route: 048

REACTIONS (3)
  - RENAL IMPAIRMENT [None]
  - ANTINEUTROPHIL CYTOPLASMIC ANTIBODY POSITIVE [None]
  - ANTI-NEUTROPHIL CYTOPLASMIC ANTIBODY POSITIVE VASCULITIS [None]
